FAERS Safety Report 9130261 (Version 1)
Quarter: 2013Q1

REPORT INFORMATION
  Report Type: Spontaneous
  Country: CH (occurrence: CH)
  Receive Date: 20130228
  Receipt Date: 20130228
  Transmission Date: 20140127
  Serious: Yes (Other)
  Sender: FDA-Public Use
  Company Number: CH-TEVA-387309ISR

PATIENT
  Sex: Female

DRUGS (3)
  1. METFORMIN [Suspect]
     Indication: TYPE 2 DIABETES MELLITUS
     Dosage: 2000 MILLIGRAM DAILY;
     Route: 065
  2. ANTI-HYPERTENSIVE DRUG [Concomitant]
  3. STATIN [Concomitant]

REACTIONS (1)
  - Renal failure [Unknown]
